FAERS Safety Report 6557200-4 (Version None)
Quarter: 2010Q1

REPORT INFORMATION
  Report Type: 
  Country: None (occurrence: None)
  Receive Date: 20100127
  Receipt Date: 20100127
  Transmission Date: 20100710
  Serious: Yes (Life-Threatening, Hospitalization)
  Sender: FDA-Public Use
  Company Number: None

PATIENT
  Age: 45 Year
  Sex: Male
  Weight: 51.7101 kg

DRUGS (1)
  1. DALTEPARIN [Suspect]
     Indication: PULMONARY EMBOLISM
     Dosage: 18000 UKNITS EVERYDAY SQ
     Route: 058
     Dates: start: 20100108, end: 20100110

REACTIONS (3)
  - HAEMOGLOBIN DECREASED [None]
  - MUSCLE HAEMORRHAGE [None]
  - RETROPERITONEAL HAEMORRHAGE [None]
